FAERS Safety Report 4804771-1 (Version None)
Quarter: 2005Q4

REPORT INFORMATION
  Report Type: 
  Country: None (occurrence: None)
  Receive Date: 20051017
  Receipt Date: 20051010
  Transmission Date: 20060501
  Serious: Yes (Death)
  Sender: FDA-Public Use
  Company Number: 2004-120941-NL

PATIENT
  Age: 46 Year
  Sex: Male

DRUGS (3)
  1. MIRTAZAPINE [Suspect]
     Dosage: DF
  2. TEMAZEPAM [Suspect]
  3. ETHANOL [Suspect]
     Dosage: DF

REACTIONS (2)
  - ALCOHOL USE [None]
  - OVERDOSE [None]
